FAERS Safety Report 6705119-8 (Version None)
Quarter: 2010Q2

REPORT INFORMATION
  Report Type: 
  Country: None (occurrence: None)
  Receive Date: 20100430
  Receipt Date: 20091210
  Transmission Date: 20101027
  Serious: No
  Sender: FDA-Public Use
  Company Number: US-ASTRAZENECA-2009SE31242

PATIENT
  Sex: Female

DRUGS (7)
  1. NEXIUM [Suspect]
     Route: 048
  2. ADVAIR DISKUS 100/50 [Concomitant]
  3. DILTIAZEM HCL [Concomitant]
  4. LISINOPRIL [Concomitant]
  5. ALLEGRA [Concomitant]
  6. SINGULAIR [Concomitant]
  7. METOPROLOL [Concomitant]

REACTIONS (2)
  - PHARYNGEAL OEDEMA [None]
  - SWOLLEN TONGUE [None]
